FAERS Safety Report 9099509 (Version 1)
Quarter: 2013Q1

REPORT INFORMATION
  Report Type: Spontaneous
  Country: GB (occurrence: GB)
  Receive Date: 20130214
  Receipt Date: 20130214
  Transmission Date: 20140127
  Serious: Yes (Death)
  Sender: FDA-Public Use
  Company Number: PHHY2013GB014040

PATIENT
  Sex: 0

DRUGS (1)
  1. FORMOTEROL [Suspect]
     Dosage: UNK

REACTIONS (1)
  - Subarachnoid haemorrhage [Fatal]
